FAERS Safety Report 7203993-2 (Version None)
Quarter: 2010Q4

REPORT INFORMATION
  Report Type: 
  Country: None (occurrence: None)
  Receive Date: 20101230
  Receipt Date: 20101228
  Transmission Date: 20110411
  Serious: No
  Sender: FDA-Public Use
  Company Number: US-PFIZER INC-2010180706

PATIENT
  Sex: Male
  Weight: 68.9 kg

DRUGS (1)
  1. PRISTIQ [Suspect]
     Indication: DEPRESSION
     Dosage: 50 MG, DAILY
     Route: 048
     Dates: start: 20101223

REACTIONS (3)
  - BOWEL MOVEMENT IRREGULARITY [None]
  - DIARRHOEA [None]
  - MEDICATION RESIDUE [None]
